FAERS Safety Report 9516634 (Version 2)
Quarter: 2013Q3

REPORT INFORMATION
  Report Type: Report from Study
  Country: AU (occurrence: AU)
  Receive Date: 20130911
  Receipt Date: 20130913
  Transmission Date: 20140515
  Serious: Yes (Hospitalization)
  Sender: FDA-Public Use
  Company Number: AU-GLAXOSMITHKLINE-B0917647B

PATIENT
  Age: 69 Year
  Sex: Male

DRUGS (15)
  1. PAZOPANIB [Suspect]
     Indication: RENAL CELL CARCINOMA
     Route: 048
     Dates: end: 20130612
  2. CYMBALTA [Concomitant]
     Dosage: 60UNIT PER DAY
     Route: 048
     Dates: start: 20130807
  3. ENDONE [Concomitant]
     Dosage: 5UNIT FOUR TIMES PER DAY
     Route: 048
     Dates: start: 20120412
  4. HYPROMELLOSE [Concomitant]
     Dosage: .3%DS AS REQUIRED
     Route: 047
     Dates: start: 20120207
  5. NORSPAN [Concomitant]
     Dosage: 20UNIT WEEKLY
     Route: 061
     Dates: start: 20100208, end: 20130226
  6. PANADOL OSTEO [Concomitant]
     Dosage: 1330UNIT THREE TIMES PER DAY
     Route: 048
     Dates: start: 20050524
  7. NORSPAN [Concomitant]
     Dosage: 20UNIT UNKNOWN
     Route: 062
     Dates: start: 20130326
  8. CARDIZEM [Concomitant]
     Dosage: 180UNIT PER DAY
     Route: 048
     Dates: start: 20130411
  9. PERINDOPRIL [Concomitant]
     Route: 048
     Dates: start: 20130411
  10. THYROXINE [Concomitant]
     Dosage: 50UNIT PER DAY
     Route: 048
     Dates: start: 20130423
  11. ASPIRIN [Concomitant]
     Dosage: 100MG PER DAY
     Route: 048
     Dates: start: 20130508, end: 20130521
  12. UNKNOWN DRUG [Concomitant]
     Dosage: 1UNIT PER DAY
     Route: 048
     Dates: start: 20130521
  13. WARFARIN [Concomitant]
     Route: 048
     Dates: start: 20130613, end: 20130624
  14. CLEXANE [Concomitant]
     Dosage: 100UNIT PER DAY
     Route: 058
     Dates: start: 20130524, end: 20130624
  15. LEVETIRACETAM [Concomitant]
     Dosage: 500UNIT PER DAY
     Route: 048
     Dates: start: 20130625

REACTIONS (1)
  - Aphasia [Recovering/Resolving]
